FAERS Safety Report 13985086 (Version 4)
Quarter: 2017Q4

REPORT INFORMATION
  Report Type: Spontaneous
  Country: IN (occurrence: IN)
  Receive Date: 20170919
  Receipt Date: 20171003
  Transmission Date: 20180321
  Serious: Yes (Death)
  Sender: FDA-Public Use
  Company Number: IN-CONCORDIA PHARMACEUTICALS INC.-GSH201709-005270

PATIENT
  Age: 24 Year
  Sex: Female

DRUGS (7)
  1. PREDNISOLONE. [Suspect]
     Active Substance: PREDNISOLONE
  2. METHOTREXATE. [Suspect]
     Active Substance: METHOTREXATE
     Dosage: AT ADMISSION
  3. PHENYTOIN. [Concomitant]
     Active Substance: PHENYTOIN
     Indication: GENERALISED TONIC-CLONIC SEIZURE
  4. CHLOROQUINE. [Suspect]
     Active Substance: CHLOROQUINE
  5. CEFTRIAXONE. [Suspect]
     Active Substance: CEFTRIAXONE
  6. PULSE STEROIDS [Suspect]
     Active Substance: UNSPECIFIED INGREDIENT
  7. DEXAMETHASONE. [Suspect]
     Active Substance: DEXAMETHASONE

REACTIONS (1)
  - Meningoencephalitis amoebic [Fatal]
